FAERS Safety Report 10613705 (Version 2)
Quarter: 2015Q2

REPORT INFORMATION
  Report Type: Report from Study
  Country: IT (occurrence: IT)
  Receive Date: 20141128
  Receipt Date: 20150409
  Transmission Date: 20150821
  Serious: Yes (Hospitalization)
  Sender: FDA-Public Use
  Company Number: IT-PFIZER INC-2014323189

PATIENT
  Age: 73 Year
  Sex: Female
  Weight: 47 kg

DRUGS (5)
  1. CRIZOTINIB [Suspect]
     Active Substance: CRIZOTINIB
     Dosage: 250 MG, DAILY
     Route: 048
     Dates: start: 20120328
  2. CITALOPRAM [Concomitant]
     Active Substance: CITALOPRAM HYDROBROMIDE
     Indication: DEPRESSION
     Dosage: 10 GTT, DAILY
     Route: 048
     Dates: start: 201409
  3. NORMIX [Concomitant]
     Active Substance: RIFAXIMIN
     Indication: DIVERTICULITIS
     Dosage: UNK
     Route: 048
     Dates: start: 201410
  4. SOTALOL. [Concomitant]
     Active Substance: SOTALOL
     Indication: TACHYCARDIA PAROXYSMAL
     Dosage: UNK
     Route: 048
     Dates: start: 2004
  5. LANSOPRAZOLE. [Concomitant]
     Active Substance: LANSOPRAZOLE
     Indication: PROPHYLAXIS
     Dosage: 30 MG, DAILY
     Route: 048
     Dates: start: 201409

REACTIONS (2)
  - Diverticulitis [Recovering/Resolving]
  - Cognitive disorder [Recovering/Resolving]

NARRATIVE: CASE EVENT DATE: 20141023
